FAERS Safety Report 9182336 (Version 1)
Quarter: 2013Q1

REPORT INFORMATION
  Report Type: Spontaneous
  Country: US (occurrence: None)
  Receive Date: 20130321
  Receipt Date: 20130321
  Transmission Date: 20140127
  Serious: Yes (Other)
  Sender: FDA-Public Use
  Company Number: None

PATIENT
  Age: 4 Year
  Sex: Male
  Weight: 17.69 kg

DRUGS (3)
  1. VYVANSE [Suspect]
     Indication: ATTENTION DEFICIT/HYPERACTIVITY DISORDER
     Dosage: 1 DAILY
  2. VYVANSE [Suspect]
     Dosage: 1 DAILY
  3. INTUNIV [Suspect]
     Indication: ATTENTION DEFICIT/HYPERACTIVITY DISORDER
     Dosage: NIGHT AT 7PM

REACTIONS (6)
  - Vision blurred [None]
  - Decreased appetite [None]
  - Irritability [None]
  - Pruritus [None]
  - Eczema [None]
  - Skin disorder [None]
